FAERS Safety Report 16151706 (Version 5)
Quarter: 2021Q3

REPORT INFORMATION
  Report Type: Spontaneous
  Country: HU (occurrence: HU)
  Receive Date: 20190403
  Receipt Date: 20210726
  Transmission Date: 20211014
  Serious: Yes (Hospitalization, Other)
  Sender: FDA-Public Use
  Company Number: HU-JNJFOC-20190328524

PATIENT
  Age: 52 Year
  Sex: Male

DRUGS (12)
  1. RIVOTRIL [Suspect]
     Active Substance: CLONAZEPAM
     Indication: PRODUCT USED FOR UNKNOWN INDICATION
     Route: 065
  2. CINOLAZEPAM [Suspect]
     Active Substance: CINOLAZEPAM
     Indication: PRODUCT USED FOR UNKNOWN INDICATION
     Route: 065
  3. QUETIAPINE. [Suspect]
     Active Substance: QUETIAPINE
     Indication: PRODUCT USED FOR UNKNOWN INDICATION
     Route: 065
  4. MIRTAZAPINE. [Suspect]
     Active Substance: MIRTAZAPINE
     Indication: PRODUCT USED FOR UNKNOWN INDICATION
     Route: 065
  5. ENOXAPARIN SODIUM. [Concomitant]
     Active Substance: ENOXAPARIN SODIUM
  6. METOPROLOL. [Concomitant]
     Active Substance: METOPROLOL
  7. HALOPERIDOL. [Suspect]
     Active Substance: HALOPERIDOL
     Indication: PRODUCT USED FOR UNKNOWN INDICATION
     Route: 065
  8. PROCYCLIDINE HYDROCHLORIDE [Suspect]
     Active Substance: PROCYCLIDINE HYDROCHLORIDE
     Indication: PRODUCT USED FOR UNKNOWN INDICATION
     Route: 065
  9. PANTOPRAZOLE [Suspect]
     Active Substance: PANTOPRAZOLE
     Indication: PRODUCT USED FOR UNKNOWN INDICATION
     Route: 065
  10. PALIPERIDONE. [Suspect]
     Active Substance: PALIPERIDONE
     Indication: SCHIZOPHRENIA
     Route: 048
  11. PERINDOPRIL [Suspect]
     Active Substance: PERINDOPRIL
     Indication: PRODUCT USED FOR UNKNOWN INDICATION
     Route: 065
  12. BIPERIDEN [Suspect]
     Active Substance: BIPERIDEN
     Indication: PRODUCT USED FOR UNKNOWN INDICATION
     Route: 065

REACTIONS (10)
  - Hyponatraemia [Recovering/Resolving]
  - Paraparesis [Recovering/Resolving]
  - Postoperative respiratory failure [Recovering/Resolving]
  - Sinus tachycardia [Recovering/Resolving]
  - Spinal compression fracture [Recovering/Resolving]
  - Altered state of consciousness [Recovered/Resolved]
  - Seizure [Unknown]
  - Extradural abscess [Unknown]
  - Fall [Recovering/Resolving]
  - Subdural abscess [Unknown]

NARRATIVE: CASE EVENT DATE: 2013
